FAERS Safety Report 19833961 (Version 1)
Quarter: 2021Q3

REPORT INFORMATION
  Report Type: Spontaneous
  Country: AU (occurrence: AU)
  Receive Date: 20210915
  Receipt Date: 20210915
  Transmission Date: 20211014
  Serious: Yes (Other)
  Sender: FDA-Public Use
  Company Number: AU-ALKEM LABORATORIES LIMITED-AU-ALKEM-2021-05768

PATIENT
  Age: 68 Year
  Sex: Male

DRUGS (8)
  1. MYCOPHENOLATE MOFETIL. [Suspect]
     Active Substance: MYCOPHENOLATE MOFETIL
     Indication: PRODUCT USED FOR UNKNOWN INDICATION
     Dosage: UNK
     Route: 065
  2. METHYLPREDNISOLONE. [Suspect]
     Active Substance: METHYLPREDNISOLONE
     Indication: PRODUCT USED FOR UNKNOWN INDICATION
     Dosage: UNK
     Route: 065
  3. VALGANCICLOVIR. [Suspect]
     Active Substance: VALGANCICLOVIR
     Indication: PRODUCT USED FOR UNKNOWN INDICATION
     Dosage: UNK
     Route: 065
  4. MUROMONAB?CD3 [Suspect]
     Active Substance: MUROMONAB-CD3
     Indication: PRODUCT USED FOR UNKNOWN INDICATION
     Dosage: UNK
     Route: 065
  5. AZATHIOPRINE. [Suspect]
     Active Substance: AZATHIOPRINE
     Indication: PRODUCT USED FOR UNKNOWN INDICATION
     Dosage: UNK
     Route: 065
  6. GANCICLOVIR. [Suspect]
     Active Substance: GANCICLOVIR
     Indication: PRODUCT USED FOR UNKNOWN INDICATION
     Dosage: UNK
     Route: 065
  7. ACICLOVIR [Suspect]
     Active Substance: ACYCLOVIR
     Indication: PRODUCT USED FOR UNKNOWN INDICATION
     Dosage: UNK
     Route: 065
  8. PREDNISOLONE. [Suspect]
     Active Substance: PREDNISOLONE
     Indication: PRODUCT USED FOR UNKNOWN INDICATION
     Dosage: UNK
     Route: 065

REACTIONS (19)
  - Gastric fistula [Unknown]
  - Chest pain [Unknown]
  - Oesophageal ulcer [Unknown]
  - Cytomegalovirus oesophagitis [Unknown]
  - Drug resistance [Unknown]
  - Pneumothorax [Unknown]
  - Cytomegalovirus infection reactivation [Unknown]
  - Oesophagopleural fistula [Unknown]
  - Gastric ulcer [Unknown]
  - Weight decreased [Unknown]
  - Haematemesis [Unknown]
  - Pathogen resistance [Unknown]
  - Gastritis [Unknown]
  - Infection [Unknown]
  - Upper gastrointestinal haemorrhage [Unknown]
  - Respiratory failure [Unknown]
  - Gastrointestinal ulcer [Unknown]
  - Duodenitis [Unknown]
  - Malnutrition [Unknown]
